FAERS Safety Report 5222838-3 (Version None)
Quarter: 2007Q1

REPORT INFORMATION
  Report Type: 
  Country: None (occurrence: None)
  Receive Date: 20070129
  Receipt Date: 20070123
  Transmission Date: 20070707
  Serious: Yes (Other)
  Sender: FDA-Public Use
  Company Number: FR-GLAXOSMITHKLINE-B0455423A

PATIENT
  Age: 6 Year
  Sex: Female
  Weight: 16 kg

DRUGS (3)
  1. ZOFRAN [Suspect]
     Indication: PROPHYLAXIS OF NAUSEA AND VOMITING
     Route: 065
     Dates: end: 20070122
  2. PRIMPERAN [Suspect]
     Indication: NAUSEA
     Route: 065
     Dates: start: 20070119, end: 20070119
  3. CHEMOTHERAPY [Concomitant]
     Indication: NEUROBLASTOMA
     Route: 065

REACTIONS (7)
  - ABDOMINAL PAIN [None]
  - BLOOD PRESSURE INCREASED [None]
  - DYSTONIA [None]
  - EXTRAPYRAMIDAL DISORDER [None]
  - OVERDOSE [None]
  - TORTICOLLIS [None]
  - VERTIGO [None]
